FAERS Safety Report 20633890 (Version 1)
Quarter: 2022Q1

REPORT INFORMATION
  Report Type: Spontaneous
  Country: NO (occurrence: NO)
  Receive Date: 20220324
  Receipt Date: 20220324
  Transmission Date: 20220423
  Serious: Yes (Disabling)
  Sender: FDA-Public Use
  Company Number: None

PATIENT
  Sex: Male

DRUGS (7)
  1. TRIAMCINOLONE ACETONIDE [Suspect]
     Active Substance: TRIAMCINOLONE ACETONIDE
     Indication: Hormone replacement therapy
     Dosage: 40 MG ONCE EVERY WEEK FOR 7-8 YEARS, THEN REDUCTION TO 40 MG ONCE EVERY 10TH DAY BUT LATER INCREASED
     Route: 030
     Dates: start: 20101010
  2. EZETIMIB KRKA [Concomitant]
     Indication: Hypercholesterolaemia
     Route: 048
     Dates: start: 20110110
  3. DOXAZOSIN MESYLATE [Concomitant]
     Active Substance: DOXAZOSIN MESYLATE
     Indication: Hypertension
     Route: 048
     Dates: start: 20120320
  4. NEBIDO [Concomitant]
     Active Substance: TESTOSTERONE UNDECANOATE
     Indication: Hormone replacement therapy
     Dosage: 1 DOSE HVER 10. UKE
     Route: 030
     Dates: start: 20101201
  5. NORDITROPIN [Concomitant]
     Active Substance: SOMATROPIN
     Indication: Hormone replacement therapy
     Route: 058
     Dates: start: 20111115
  6. ATORVASTATIN XIROMED [Concomitant]
     Indication: Hypercholesterolaemia
     Route: 048
     Dates: start: 20110110
  7. ATACAND [Concomitant]
     Active Substance: CANDESARTAN CILEXETIL
     Indication: Hypertension
     Route: 047
     Dates: start: 20101201

REACTIONS (4)
  - Psychotic disorder [Recovered/Resolved with Sequelae]
  - Behaviour disorder [Recovered/Resolved with Sequelae]
  - Depression [Not Recovered/Not Resolved]
  - Hypomania [Recovered/Resolved with Sequelae]

NARRATIVE: CASE EVENT DATE: 20110101
